FAERS Safety Report 7964623-5 (Version None)
Quarter: 2011Q4

REPORT INFORMATION
  Report Type: 
  Country: None (occurrence: None)
  Receive Date: 20111208
  Receipt Date: 20111124
  Transmission Date: 20120403
  Serious: Yes (Hospitalization)
  Sender: FDA-Public Use
  Company Number: CA-JNJFOC-20111203096

PATIENT
  Sex: Male
  Weight: 83.01 kg

DRUGS (4)
  1. REMICADE [Suspect]
     Indication: PSORIASIS
     Dates: start: 20101206, end: 20111104
  2. SULCRATE [Concomitant]
  3. PANTOPRAZOLE SODIUM [Concomitant]
  4. FERROUS SULFATE TAB [Concomitant]

REACTIONS (2)
  - DRUG INEFFECTIVE [None]
  - UPPER GASTROINTESTINAL HAEMORRHAGE [None]
